FAERS Safety Report 9543261 (Version 4)
Quarter: 2014Q1

REPORT INFORMATION
  Report Type: Spontaneous
  Country: JP (occurrence: JP)
  Receive Date: 20130923
  Receipt Date: 20140130
  Transmission Date: 20141002
  Serious: Yes (Death, Hospitalization, Disabling, Other)
  Sender: FDA-Public Use
  Company Number: JP-ABBVIE-13P-087-1143691-00

PATIENT
  Age: 72 Year
  Sex: Female

DRUGS (10)
  1. HUMIRA [Suspect]
     Indication: RHEUMATOID ARTHRITIS
     Route: 058
     Dates: start: 20110305, end: 20130831
  2. PREDNISOLONE [Concomitant]
     Indication: RHEUMATOID ARTHRITIS
     Route: 048
  3. PREDNISOLONE [Concomitant]
     Route: 048
     Dates: start: 20071114, end: 20130831
  4. ANTIHYPERTENSIVES [Concomitant]
     Indication: HYPERTENSION
  5. CELECOXIB [Concomitant]
     Indication: RHEUMATOID ARTHRITIS
     Route: 048
     Dates: start: 20071114, end: 20130831
  6. REBAMIPIDE [Concomitant]
     Indication: PROPHYLAXIS
     Route: 048
     Dates: start: 20071114, end: 20130831
  7. REBAMIPIDE [Concomitant]
     Indication: ADVERSE EVENT
  8. ISONIAZID [Concomitant]
     Indication: PULMONARY TUBERCULOSIS
     Route: 048
     Dates: start: 20110805, end: 20130831
  9. LEVOTHYROXINE [Concomitant]
     Indication: HYPOTHYROIDISM
     Route: 048
     Dates: start: 20090825, end: 20130831
  10. MINODRONIC ACID [Concomitant]
     Indication: OSTEOPOROSIS
     Dates: start: 20111109, end: 20130831

REACTIONS (16)
  - Shock haemorrhagic [Fatal]
  - Acute respiratory failure [Fatal]
  - Cardiac failure acute [Fatal]
  - Interstitial lung disease [Fatal]
  - Aortic valve stenosis [Fatal]
  - Cardiac valve disease [Unknown]
  - Insomnia [Unknown]
  - Chest X-ray abnormal [Unknown]
  - Aortic valve calcification [Unknown]
  - Respiratory disorder [Unknown]
  - Inflammatory marker increased [Unknown]
  - Lung infiltration [Unknown]
  - Interstitial lung disease [Unknown]
  - Infection [Unknown]
  - Haemorrhagic diathesis [Unknown]
  - Pulmonary haemorrhage [Unknown]
